FAERS Safety Report 9561365 (Version 1)
Quarter: 2013Q3

REPORT INFORMATION
  Report Type: Spontaneous
  Country: US (occurrence: US)
  Receive Date: 20130927
  Receipt Date: 20130927
  Transmission Date: 20140515
  Serious: No
  Sender: FDA-Public Use
  Company Number: US-BIOGENIDEC-2013BI058423

PATIENT
  Age: 55 Year
  Sex: Male

DRUGS (8)
  1. TECFIDERA [Suspect]
     Indication: MULTIPLE SCLEROSIS
     Route: 048
     Dates: start: 20130606
  2. TECFIDERA [Suspect]
     Indication: MULTIPLE SCLEROSIS
     Dates: start: 20130827
  3. XANAX [Concomitant]
  4. NEURONTIN [Concomitant]
  5. SIMVASTATIN [Concomitant]
  6. BACLOFEN [Concomitant]
  7. ASPIRIN [Concomitant]
  8. VIT D3 [Concomitant]

REACTIONS (1)
  - Flushing [Unknown]
